FAERS Safety Report 17822680 (Version 1)
Quarter: 2020Q2

REPORT INFORMATION
  Report Type: Spontaneous
  Country: HR (occurrence: HR)
  Receive Date: 20200526
  Receipt Date: 20200526
  Transmission Date: 20200714
  Serious: Yes (Other)
  Sender: FDA-Public Use
  Company Number: HR-ASTRAZENECA-2020SE66164

PATIENT
  Sex: Male

DRUGS (3)
  1. SULPIRIDE [Suspect]
     Active Substance: SULPIRIDE
     Dosage: DAILY
     Route: 048
     Dates: start: 20191208, end: 20191208
  2. NITRAZEPAM [Suspect]
     Active Substance: NITRAZEPAM
     Dosage: DAILY
     Route: 048
     Dates: start: 20191208, end: 20191208
  3. QUETIAPIN [Suspect]
     Active Substance: QUETIAPINE
     Dosage: DOSE: FEW TABLETS, DAILY
     Route: 048
     Dates: start: 20191208, end: 20191208

REACTIONS (3)
  - Somnolence [Unknown]
  - Intentional overdose [Unknown]
  - Suicide attempt [Unknown]

NARRATIVE: CASE EVENT DATE: 20191208
